FAERS Safety Report 8099817-4 (Version None)
Quarter: 2012Q1

REPORT INFORMATION
  Report Type: 
  Country: None (occurrence: None)
  Receive Date: 20120129
  Receipt Date: 20111010
  Transmission Date: 20120608
  Serious: No
  Sender: FDA-Public Use
  Company Number: US-ABBOTT-11P-163-0862539-00

PATIENT
  Sex: Female
  Weight: 67.192 kg

DRUGS (3)
  1. HUMIRA [Suspect]
     Dosage: ONCE EVERY ONE TO TWO WEEKS
     Dates: start: 20110301
  2. CLARITIN [Concomitant]
     Indication: SINUS DISORDER
  3. HUMIRA [Suspect]
     Indication: CROHN'S DISEASE
     Dosage: ONCE EVERY ONE TO TWO WEEKS
     Dates: start: 20080101, end: 20100701

REACTIONS (2)
  - RHEUMATOID ARTHRITIS [None]
  - DRUG INEFFECTIVE [None]
